FAERS Safety Report 9391603 (Version 2)
Quarter: 2013Q3

REPORT INFORMATION
  Report Type: Spontaneous
  Country: RU (occurrence: RU)
  Receive Date: 20130709
  Receipt Date: 20130823
  Transmission Date: 20140515
  Serious: Yes (Death, Other)
  Sender: FDA-Public Use
  Company Number: RU-ASTRAZENECA-2013SE51079

PATIENT
  Age: 70 Year
  Sex: Male

DRUGS (5)
  1. BRILINTA [Suspect]
     Indication: ACUTE MYOCARDIAL INFARCTION
     Route: 048
     Dates: start: 201301
  2. ASPIRIN [Concomitant]
     Indication: ACUTE MYOCARDIAL INFARCTION
     Route: 048
     Dates: start: 201301
  3. B-BLOCKER [Concomitant]
     Route: 048
     Dates: start: 201301
  4. HEPARIN [Concomitant]
     Dosage: 3 MG PER KG BODY WEIGH
     Dates: start: 201301
  5. PROTAMINE [Concomitant]
     Dates: start: 201301

REACTIONS (3)
  - Haemorrhage [Fatal]
  - Myocardial ischaemia [Fatal]
  - Myocardial infarction [Fatal]
